FAERS Safety Report 9267341 (Version 1)
Quarter: 2013Q2

REPORT INFORMATION
  Report Type: Spontaneous
  Country: US (occurrence: US)
  Receive Date: 20130502
  Receipt Date: 20130502
  Transmission Date: 20140414
  Serious: Yes (Other)
  Sender: FDA-Public Use
  Company Number: US-BANPHARM-20131230

PATIENT
  Age: 81 Year
  Sex: Male
  Weight: 79.38 kg

DRUGS (3)
  1. ALEVE LIQUID GELS 220 MG [Suspect]
     Indication: SCIATICA
     Dosage: 1 DF, BID,
     Route: 048
     Dates: start: 201304, end: 20130417
  2. TERAZOSIN [Concomitant]
  3. FINASTERIDE [Concomitant]

REACTIONS (2)
  - Haemoptysis [Recovered/Resolved]
  - Incorrect drug administration duration [Recovered/Resolved]
